FAERS Safety Report 10598108 (Version 2)
Quarter: 2014Q4

REPORT INFORMATION
  Report Type: Spontaneous
  Country: US (occurrence: US)
  Receive Date: 20141121
  Receipt Date: 20141230
  Transmission Date: 20150529
  Serious: No
  Sender: FDA-Public Use
  Company Number: US-PFIZER INC-2014321212

PATIENT
  Age: 70 Year
  Sex: Female

DRUGS (1)
  1. PREMARIN [Suspect]
     Active Substance: ESTROGENS, CONJUGATED
     Indication: HORMONE REPLACEMENT THERAPY
     Dosage: 0.625 MG, 2X/WEEK
     Dates: start: 2000

REACTIONS (3)
  - Feeling abnormal [Recovered/Resolved]
  - Pelvic pain [Recovered/Resolved]
  - Vaginal inflammation [Recovered/Resolved]
